FAERS Safety Report 16703823 (Version 2)
Quarter: 2024Q2

REPORT INFORMATION
  Report Type: Spontaneous
  Country: US (occurrence: US)
  Receive Date: 20190814
  Receipt Date: 20240619
  Transmission Date: 20240716
  Serious: No
  Sender: FDA-Public Use
  Company Number: US-JNJFOC-20190816661

PATIENT
  Sex: Male

DRUGS (4)
  1. RISPERDAL [Suspect]
     Active Substance: RISPERIDONE
     Indication: Aggression
     Route: 048
     Dates: start: 2005, end: 2006
  2. RISPERDAL [Suspect]
     Active Substance: RISPERIDONE
     Indication: Attention deficit hyperactivity disorder
  3. RISPERDAL [Suspect]
     Active Substance: RISPERIDONE
     Indication: Sleep disorder
  4. RISPERDAL [Suspect]
     Active Substance: RISPERIDONE
     Indication: Thinking abnormal

REACTIONS (3)
  - Obesity [Unknown]
  - Emotional disorder [Unknown]
  - Gynaecomastia [Unknown]
